FAERS Safety Report 22194683 (Version 5)
Quarter: 2023Q4

REPORT INFORMATION
  Report Type: Report from Study
  Country: FR (occurrence: FR)
  Receive Date: 20230411
  Receipt Date: 20231012
  Transmission Date: 20240109
  Serious: Yes (Hospitalization)
  Sender: FDA-Public Use
  Company Number: FR-SA-SAC20230405000499

PATIENT
  Age: 65 Year
  Sex: Male
  Weight: 96 kg

DRUGS (12)
  1. ISATUXIMAB [Suspect]
     Active Substance: ISATUXIMAB
     Indication: Plasma cell myeloma
     Dosage: 1090 MG (FREQUENCY: 2 DAYS PER MONTH)
     Route: 042
     Dates: start: 20220809, end: 20220809
  2. ISATUXIMAB [Suspect]
     Active Substance: ISATUXIMAB
     Dosage: 1090 MG (FREQUENCY: 2 DAYS PER MONTH)
     Dates: start: 20230320, end: 20230320
  3. ISATUXIMAB [Suspect]
     Active Substance: ISATUXIMAB
     Dosage: 950 MG
     Route: 042
     Dates: start: 20230418, end: 20230418
  4. CARFILZOMIB [Suspect]
     Active Substance: CARFILZOMIB
     Indication: Plasma cell myeloma
     Dosage: 122 MG (FREQUENCY 3 DAYS PER MONTH)
     Route: 042
     Dates: start: 20220809, end: 20220809
  5. CARFILZOMIB [Suspect]
     Active Substance: CARFILZOMIB
     Dosage: 122 MG (FREQUENCY 3 DAYS PER MONTH)
     Route: 042
     Dates: start: 20230320, end: 20230320
  6. CARFILZOMIB [Suspect]
     Active Substance: CARFILZOMIB
     Dosage: 116 MG
     Route: 042
     Dates: start: 20230418, end: 20230418
  7. LENALIDOMIDE [Suspect]
     Active Substance: LENALIDOMIDE
     Indication: Plasma cell myeloma
     Dosage: 25 MG, QD
     Route: 048
     Dates: start: 20220809, end: 20220809
  8. LENALIDOMIDE [Suspect]
     Active Substance: LENALIDOMIDE
     Dosage: 25 MG, QD
     Route: 048
     Dates: start: 20230326, end: 20230326
  9. LENALIDOMIDE [Suspect]
     Active Substance: LENALIDOMIDE
     Dosage: 25 MG, QD
     Route: 048
     Dates: start: 20230425, end: 20230425
  10. DEXAMETHASONE [Suspect]
     Active Substance: DEXAMETHASONE
     Indication: Plasma cell myeloma
     Dosage: 40 MG, QW
     Route: 048
     Dates: start: 20220809, end: 20220809
  11. DEXAMETHASONE [Suspect]
     Active Substance: DEXAMETHASONE
     Dosage: 40 MG, QW
     Route: 048
     Dates: start: 20230327, end: 20230327
  12. DEXAMETHASONE [Suspect]
     Active Substance: DEXAMETHASONE
     Dosage: 40 MG, QW
     Route: 048
     Dates: start: 20230418, end: 20230418

REACTIONS (2)
  - Acute coronary syndrome [Recovered/Resolved]
  - Malaise [Recovered/Resolved]

NARRATIVE: CASE EVENT DATE: 20230301
